FAERS Safety Report 21184984 (Version 1)
Quarter: 2022Q3

REPORT INFORMATION
  Report Type: Spontaneous
  Country: US (occurrence: None)
  Receive Date: 20220806
  Receipt Date: 20220806
  Transmission Date: 20221026
  Serious: No
  Sender: FDA-Public Use
  Company Number: None

PATIENT
  Age: 28 Year
  Sex: Female
  Weight: 80.55 kg

DRUGS (1)
  1. MIRENA [Suspect]
     Active Substance: LEVONORGESTREL
     Indication: Contraception
     Dates: start: 20210730, end: 20220804

REACTIONS (8)
  - Weight increased [None]
  - Mood swings [None]
  - Feeling abnormal [None]
  - Constipation [None]
  - Haemorrhoids [None]
  - Muscle spasms [None]
  - Complication of device removal [None]
  - Depression [None]
